FAERS Safety Report 9801709 (Version 3)
Quarter: 2014Q2

REPORT INFORMATION
  Report Type: Spontaneous
  Country: US (occurrence: US)
  Receive Date: 20140107
  Receipt Date: 20140620
  Transmission Date: 20141212
  Serious: Yes (Other)
  Sender: FDA-Public Use
  Company Number: US-TEVA-454374USA

PATIENT
  Sex: Female

DRUGS (1)
  1. COPAXONE [Suspect]
     Indication: MULTIPLE SCLEROSIS
     Dates: start: 2005, end: 201405

REACTIONS (22)
  - Multiple sclerosis [Unknown]
  - Fall [Unknown]
  - Spinal compression fracture [Unknown]
  - Abasia [Unknown]
  - Neurostimulator implantation [Recovering/Resolving]
  - Balance disorder [Unknown]
  - Arthritis [Recovering/Resolving]
  - Speech disorder [Recovering/Resolving]
  - Memory impairment [Recovering/Resolving]
  - Muscle spasticity [Recovering/Resolving]
  - Gait disturbance [Unknown]
  - Hypoaesthesia [Unknown]
  - Fatigue [Unknown]
  - Arthropathy [Unknown]
  - Dysstasia [Unknown]
  - Memory impairment [Unknown]
  - Muscle spasms [Unknown]
  - Muscle twitching [Unknown]
  - Muscle spasms [Unknown]
  - Osteoarthritis [Unknown]
  - Pollakiuria [Unknown]
  - Memory impairment [Unknown]
